FAERS Safety Report 9638205 (Version 2)
Quarter: 2013Q4

REPORT INFORMATION
  Report Type: Spontaneous
  Country: US (occurrence: US)
  Receive Date: 20131022
  Receipt Date: 20131129
  Transmission Date: 20140711
  Serious: No
  Sender: FDA-Public Use
  Company Number: US-PFIZER INC-2013297905

PATIENT
  Age: 65 Year
  Sex: Female
  Weight: 79.4 kg

DRUGS (7)
  1. CHANTIX [Suspect]
     Indication: SMOKING CESSATION THERAPY
     Dosage: 0.5 MG, 1X/DAY
     Route: 048
  2. CHANTIX [Suspect]
     Dosage: UNK
     Route: 048
  3. CHANTIX [Suspect]
     Dosage: 0.5 MG, 1X/DAY
     Route: 048
  4. CHANTIX [Suspect]
     Dosage: 0.5 MG, 1X/DAY
     Route: 048
     Dates: start: 201310, end: 201310
  5. CHANTIX [Suspect]
     Dosage: 1 MG, 2X/DAY
     Route: 048
     Dates: start: 201310, end: 2013
  6. CHANTIX [Suspect]
     Dosage: UNK
     Route: 048
     Dates: start: 2013, end: 2013
  7. LITHIUM [Concomitant]
     Indication: BIPOLAR DISORDER
     Dosage: 300MG IN MORNING AND 600MG IN EVENING

REACTIONS (6)
  - Chest discomfort [Unknown]
  - Oropharyngeal discomfort [Unknown]
  - Vomiting [Recovered/Resolved]
  - Nausea [Unknown]
  - Nightmare [Unknown]
  - Malaise [Unknown]
